FAERS Safety Report 5169460-5 (Version None)
Quarter: 2006Q4

REPORT INFORMATION
  Report Type: 
  Country: None (occurrence: None)
  Receive Date: 20061201
  Receipt Date: 20061120
  Transmission Date: 20070319
  Serious: Yes (Hospitalization, Disabling, Other)
  Sender: FDA-Public Use
  Company Number: 2006114681

PATIENT
  Age: 47 Year
  Sex: Male
  Weight: 104.3273 kg

DRUGS (18)
  1. VIAGRA [Suspect]
     Indication: ERECTILE DYSFUNCTION
     Dates: start: 20020101, end: 20020101
  2. ANTIHYPERTENSIVES (ANTIHYPERTENSIVES) [Suspect]
     Indication: HYPERTENSION
     Dates: end: 20020101
  3. PREDNISONE TAB [Suspect]
     Dosage: SEE IMAGE, INTRAVENOUS
     Route: 042
  4. TOPROL-XL [Concomitant]
  5. NITRO (GLYCERYL TRINITRATE) [Concomitant]
  6. PREVACID [Concomitant]
  7. LORAZEPAM [Concomitant]
  8. CLONAZEPAM [Concomitant]
  9. LEXAPRO [Concomitant]
  10. CYCLOBENZAPRINE HCL [Concomitant]
  11. SPIRIVA [Concomitant]
  12. ALBUTEROL [Concomitant]
  13. SINGULAIR [Concomitant]
  14. ADVAIR DISKUS 100/50 [Concomitant]
  15. SULFAMETHOXAZOLE [Concomitant]
  16. ZOVIRAX [Concomitant]
  17. CODEINE/PROMETHAZNE (CODEINE, PROMETHAZINE) [Concomitant]
  18. IBUPROFEN [Concomitant]

REACTIONS (20)
  - ASTHMA [None]
  - BLOOD CHOLESTEROL INCREASED [None]
  - BLOOD PRESSURE DIASTOLIC DECREASED [None]
  - BLOOD TRIGLYCERIDES INCREASED [None]
  - BONE GRAFT [None]
  - BONE NEOPLASM [None]
  - CHRONIC OBSTRUCTIVE PULMONARY DISEASE [None]
  - EXOSTOSIS [None]
  - GLAUCOMA [None]
  - GOUT [None]
  - HAND FRACTURE [None]
  - HISTOPLASMOSIS [None]
  - HYDROCELE [None]
  - LUNG DISORDER [None]
  - LUNG NEOPLASM [None]
  - PNEUMONIA [None]
  - SARCOIDOSIS [None]
  - TENDON DISORDER [None]
  - VISION BLURRED [None]
  - VISUAL DISTURBANCE [None]
